FAERS Safety Report 7798041-X (Version None)
Quarter: 2011Q4

REPORT INFORMATION
  Report Type: 
  Country: None (occurrence: None)
  Receive Date: 20111004
  Receipt Date: 20111004
  Transmission Date: 20120403
  Serious: Yes (Other)
  Sender: FDA-Public Use
  Company Number: None

PATIENT
  Sex: Male

DRUGS (2)
  1. TEMODAR [Suspect]
     Dosage: 2 CAPS X 5 DAYS QD ORALLY
     Route: 048
     Dates: start: 20101104
  2. TEMODAR [Suspect]
     Indication: BRAIN NEOPLASM MALIGNANT
     Dosage: 4 CAPS X 5 DAYS QD ORALLY
     Route: 048
     Dates: start: 20110902

REACTIONS (1)
  - PLATELET COUNT DECREASED [None]
